FAERS Safety Report 9496746 (Version 1)
Quarter: 2013Q3

REPORT INFORMATION
  Report Type: Spontaneous
  Country: GB (occurrence: None)
  Receive Date: 20130830
  Receipt Date: 20130830
  Transmission Date: 20140515
  Serious: Yes (Other)
  Sender: FDA-Public Use
  Company Number: GB-DEXPHARM-20130506

PATIENT
  Age: 34 Year
  Sex: Female

DRUGS (5)
  1. OMEPRAZOLE [Suspect]
     Dates: start: 20130304
  2. BETAMETHASONE SODIUM PHOSPHATE [Concomitant]
  3. COLCHICINE [Concomitant]
  4. MARVELON [Concomitant]
  5. MEBEVERINE HYDROCHLORIDE [Concomitant]

REACTIONS (3)
  - Paraesthesia [None]
  - Arthralgia [None]
  - Myalgia [None]
